FAERS Safety Report 24916358 (Version 1)
Quarter: 2025Q1

REPORT INFORMATION
  Report Type: Spontaneous
  Country: JP (occurrence: JP)
  Receive Date: 20250203
  Receipt Date: 20250203
  Transmission Date: 20250408
  Serious: Yes (Hospitalization, Other)
  Sender: ELI LILLY AND COMPANY
  Company Number: None

PATIENT
  Age: 22 Year
  Sex: Female
  Weight: 46 kg

DRUGS (6)
  1. ERBITUX [Suspect]
     Active Substance: CETUXIMAB
     Indication: Tongue neoplasm malignant stage unspecified
     Route: 041
     Dates: start: 20240514
  2. KEYTRUDA [Suspect]
     Active Substance: PEMBROLIZUMAB
     Indication: Tongue neoplasm malignant stage unspecified
     Route: 042
     Dates: start: 20240329
  3. CALONAL [Concomitant]
     Active Substance: ACETAMINOPHEN
     Route: 048
  4. TRAMADOL [Concomitant]
     Active Substance: TRAMADOL
     Route: 048
  5. MAGNESIUM OXIDE [Concomitant]
     Active Substance: MAGNESIUM OXIDE
     Route: 048
  6. MINOCYCLINE HYDROCHLORIDE [Concomitant]
     Active Substance: MINOCYCLINE HYDROCHLORIDE
     Route: 048

REACTIONS (8)
  - Myocarditis [Recovering/Resolving]
  - Ischaemic hepatitis [Unknown]
  - Pulmonary oedema [Unknown]
  - Pericardial effusion [Unknown]
  - Pleural effusion [Unknown]
  - Circulatory collapse [Unknown]
  - Skin disorder [Recovering/Resolving]
  - Drug eruption [Recovering/Resolving]

NARRATIVE: CASE EVENT DATE: 20240530
